FAERS Safety Report 25624308 (Version 2)
Quarter: 2025Q3

REPORT INFORMATION
  Report Type: Spontaneous
  Country: US (occurrence: US)
  Receive Date: 20250730
  Receipt Date: 20250815
  Transmission Date: 20251020
  Serious: Yes (Hospitalization, Other)
  Sender: PFIZER
  Company Number: US-PFIZER INC-202500153356

PATIENT
  Age: 39 Year
  Sex: Male

DRUGS (1)
  1. VELSIPITY [Suspect]
     Active Substance: ETRASIMOD ARGININE

REACTIONS (2)
  - Colitis ulcerative [Unknown]
  - Crohn^s disease [Unknown]
